FAERS Safety Report 23623663 (Version 8)
Quarter: 2024Q2

REPORT INFORMATION
  Report Type: Spontaneous
  Country: US (occurrence: US)
  Receive Date: 20240312
  Receipt Date: 20240620
  Transmission Date: 20240716
  Serious: Yes (Other)
  Sender: FDA-Public Use
  Company Number: US-Blueprint Medicines Corporation-2715

PATIENT
  Age: 5 Year
  Sex: Female

DRUGS (9)
  1. AYVAKIT [Suspect]
     Active Substance: AVAPRITINIB
     Indication: Brain neoplasm malignant
     Dosage: TAKE 75 MG BY MOUTH DAILY (ONE 25 MG TABLET AND ONE 50 MG TABLET)
     Route: 048
     Dates: start: 20240307, end: 20240327
  2. AYVAKIT [Suspect]
     Active Substance: AVAPRITINIB
     Indication: Brain stem glioma
     Dosage: TAKE 75 MG BY MOUTH DAILY (ONE 25 MG TABLET AND ONE 50 MG TABLET)
     Route: 048
     Dates: start: 20240307, end: 20240327
  3. AYVAKIT [Suspect]
     Active Substance: AVAPRITINIB
     Route: 065
     Dates: start: 20240425
  4. AYVAKIT [Suspect]
     Active Substance: AVAPRITINIB
     Route: 065
     Dates: start: 20240307
  5. TRAMETINIB [Suspect]
     Active Substance: TRAMETINIB
     Indication: Brain stem glioma
     Route: 065
     Dates: start: 20231219, end: 20240408
  6. KOSELUGO [Concomitant]
     Active Substance: SELUMETINIB
     Indication: Product used for unknown indication
     Route: 065
  7. HYDROXYZINE [Concomitant]
     Active Substance: HYDROXYZINE HYDROCHLORIDE
     Indication: Product used for unknown indication
     Route: 065
  8. ONDANSETRON [Concomitant]
     Active Substance: ONDANSETRON
     Indication: Product used for unknown indication
     Route: 065
  9. LIDOCAINE\PRILOCAINE [Concomitant]
     Active Substance: LIDOCAINE\PRILOCAINE
     Indication: Product used for unknown indication
     Route: 065

REACTIONS (10)
  - Periorbital swelling [Recovered/Resolved]
  - Blood albumin decreased [Recovered/Resolved]
  - Swelling [Recovered/Resolved]
  - Fatigue [Recovering/Resolving]
  - Full blood count decreased [Recovering/Resolving]
  - Fluid retention [Recovering/Resolving]
  - Adverse drug reaction [Unknown]
  - Swelling face [Not Recovered/Not Resolved]
  - Eye swelling [Not Recovered/Not Resolved]
  - Off label use [Unknown]

NARRATIVE: CASE EVENT DATE: 20240327
